FAERS Safety Report 9209188 (Version 1)
Quarter: 2013Q2

REPORT INFORMATION
  Report Type: Spontaneous
  Country: CH (occurrence: CH)
  Receive Date: 20130404
  Receipt Date: 20130404
  Transmission Date: 20140414
  Serious: Yes (Other)
  Sender: FDA-Public Use
  Company Number: CH-JNJFOC-20130315452

PATIENT
  Sex: 0

DRUGS (1)
  1. DURODESIC [Suspect]
     Indication: PRODUCT USED FOR UNKNOWN INDICATION
     Route: 062

REACTIONS (4)
  - Convulsion [Unknown]
  - Hyperhidrosis [Unknown]
  - Application site perspiration [Unknown]
  - Product quality issue [None]
